FAERS Safety Report 9203861 (Version 1)
Quarter: 2013Q1

REPORT INFORMATION
  Report Type: Spontaneous
  Country: US (occurrence: None)
  Receive Date: 20130329
  Receipt Date: 20130329
  Transmission Date: 20140127
  Serious: Yes (Hospitalization)
  Sender: FDA-Public Use
  Company Number: None

PATIENT
  Sex: Male
  Weight: 58.22 kg

DRUGS (1)
  1. DECITABINE [Suspect]
     Indication: ACUTE MYELOID LEUKAEMIA
     Dosage: DAYS 1-10
     Route: 042
     Dates: start: 20130313

REACTIONS (3)
  - Acute myeloid leukaemia [None]
  - Respiratory failure [None]
  - Disease progression [None]
